FAERS Safety Report 5221884-3 (Version None)
Quarter: 2007Q1

REPORT INFORMATION
  Report Type: 
  Country: None (occurrence: None)
  Receive Date: 20070126
  Receipt Date: 20070126
  Transmission Date: 20070707
  Serious: No
  Sender: FDA-Public Use
  Company Number: None

PATIENT
  Age: 86 Year
  Sex: Female

DRUGS (1)
  1. HEPARIN [Suspect]
     Dosage: CONTINUOUS IV
     Route: 042
     Dates: start: 20061101, end: 20061102

REACTIONS (7)
  - ABDOMINAL HAEMATOMA [None]
  - ABDOMINAL PAIN LOWER [None]
  - ANXIETY [None]
  - HAEMOGLOBIN DECREASED [None]
  - HAEMOPTYSIS [None]
  - MUSCLE HAEMORRHAGE [None]
  - OCCULT BLOOD POSITIVE [None]
